FAERS Safety Report 14919028 (Version 1)
Quarter: 2018Q2

REPORT INFORMATION
  Report Type: Spontaneous
  Country: DE (occurrence: DE)
  Receive Date: 20180521
  Receipt Date: 20180521
  Transmission Date: 20180711
  Serious: Yes (Hospitalization)
  Sender: FDA-Public Use
  Company Number: DE-PFIZER INC-2018201810

PATIENT
  Age: 79 Year
  Sex: Female
  Weight: 55 kg

DRUGS (9)
  1. FLUOROURACIL. [Suspect]
     Active Substance: FLUOROURACIL
     Dosage: 2400 UNK, UNK (2400 MG /M?, SOLUTION FOR INJECTION / INFUSION)
     Route: 042
  2. PANTOPRAZOL [Concomitant]
     Active Substance: PANTOPRAZOLE SODIUM
     Dosage: 40 MG, UNK (40 MG, 1-0-0-0, TABLET)
     Route: 048
  3. BEVACIZUMAB. [Suspect]
     Active Substance: BEVACIZUMAB
     Dosage: 5 MG/M2, UNK (5 MG /M?, SOLUTION FOR INJECTION / INFUSION)
     Route: 042
  4. FUROSEMID [Concomitant]
     Active Substance: FUROSEMIDE
     Dosage: 20 MG, UNK (20 MG, 1-0-0-0, TABLET)
     Route: 048
  5. RIVAROXABAN [Concomitant]
     Active Substance: RIVAROXABAN
     Dosage: 20 MG, UNK (20 MG, 1-0-0-0, TABLET)
     Route: 048
  6. CALCIUM FOLINATE [Suspect]
     Active Substance: LEUCOVORIN CALCIUM
     Dosage: 200 MG/M2, UNK (200 MG /M?, SOLUTION FOR INJECTION / INFUSION)
     Route: 042
  7. OXALIPLATIN. [Suspect]
     Active Substance: OXALIPLATIN
     Dosage: 50 MG/M2, UNK (50 MG /M?, SOLUTION FOR INJECTION / INFUSION)
     Route: 042
  8. METAMIZOLE [Concomitant]
     Active Substance: METAMIZOLE
     Dosage: 500 MG, UNK (500 MG, AS REQUIRED, TABLET)
     Route: 048
  9. METOPROLOL. [Concomitant]
     Active Substance: METOPROLOL
     Dosage: 50 MG, UNK (50 MG, 1-0-1-0, TABLET)
     Route: 048

REACTIONS (3)
  - Pain [Unknown]
  - General physical health deterioration [Unknown]
  - Rash [Unknown]
